FAERS Safety Report 8101613-6 (Version None)
Quarter: 2012Q1

REPORT INFORMATION
  Report Type: 
  Country: None (occurrence: None)
  Receive Date: 20120129
  Receipt Date: 20111011
  Transmission Date: 20120608
  Serious: No
  Sender: FDA-Public Use
  Company Number: US-ABBOTT-11P-163-0863225-00

PATIENT
  Age: 64 Year
  Sex: Female

DRUGS (15)
  1. VITAMIN B-12 [Concomitant]
     Indication: MEDICAL DIET
     Dosage: ONCE EVERY 1-2 MONTH
  2. ASPIRIN [Concomitant]
     Indication: CARDIAC DISORDER
  3. VITAMIN D [Concomitant]
     Indication: MEDICAL DIET
  4. OMEPRAZOLE [Concomitant]
     Indication: BARRETT'S OESOPHAGUS
  5. VICODIN [Concomitant]
     Indication: PAIN
  6. MULTI-VITAMINS [Concomitant]
     Indication: MEDICAL DIET
  7. CELEXA [Concomitant]
     Indication: DEPRESSION
  8. OMEPRAZOLE [Concomitant]
     Indication: GASTROOESOPHAGEAL REFLUX DISEASE
  9. HUMIRA [Suspect]
     Indication: CROHN'S DISEASE
     Dates: start: 20110818
  10. LISINOPRIL [Concomitant]
     Indication: HYPERTENSION
     Dosage: 20 MG IN THE MORNING AND 10 AT NIGHT
  11. FE TAB DAILY CALCIUM [Concomitant]
     Indication: MEDICAL DIET
  12. CELEXA [Concomitant]
     Indication: ANXIETY
  13. XANAX [Concomitant]
     Indication: ANXIETY
     Dosage: 2-3 TIMES A DAY
  14. XANAX [Concomitant]
     Indication: DEPRESSION
  15. VICODIN [Concomitant]
     Indication: CROHN'S DISEASE

REACTIONS (4)
  - DIARRHOEA [None]
  - INJECTION SITE PAIN [None]
  - PULMONARY CONGESTION [None]
  - NASOPHARYNGITIS [None]
